FAERS Safety Report 16618216 (Version 1)
Quarter: 2019Q3

REPORT INFORMATION
  Report Type: Spontaneous
  Country: HU (occurrence: HU)
  Receive Date: 20190723
  Receipt Date: 20190723
  Transmission Date: 20191004
  Serious: Yes (Hospitalization)
  Sender: FDA-Public Use
  Company Number: HU-AMREGENT-20191558

PATIENT
  Age: 66 Year
  Sex: Female

DRUGS (15)
  1. IMMUNOGLOBULIN IGM BASE [Suspect]
     Active Substance: HUMAN IMMUNOGLOBULIN M
     Dosage: UNKNOWN
     Route: 065
  2. METHYLPREDNISOLONE. [Suspect]
     Active Substance: METHYLPREDNISOLONE
     Dosage: 80 MG
     Route: 051
  3. TEICOPLANIN [Suspect]
     Active Substance: TEICOPLANIN
     Dosage: UNKNOWN
     Route: 065
  4. FOLIC ACID. [Suspect]
     Active Substance: FOLIC ACID
     Dosage: UNKNOWN
     Route: 065
  5. ACETYLSALICYLIC ACID [Suspect]
     Active Substance: ASPIRIN
     Dosage: UNKNOWN
     Route: 065
  6. VANCOMYCIN [Suspect]
     Active Substance: VANCOMYCIN
     Dosage: UNKNOWN
     Route: 065
  7. IMMUNOGLOBULINS (IMMUNOGLOBULIN HUMAN NORMAL) [Suspect]
     Active Substance: HUMAN IMMUNOGLOBULIN G
     Dosage: UNKNOWN
     Route: 042
  8. CEFTRIAXONE. [Suspect]
     Active Substance: CEFTRIAXONE
     Dosage: UNKNOWN
     Route: 065
  9. METRONIDAZOLE. [Suspect]
     Active Substance: METRONIDAZOLE
     Dosage: UNKNOWN
     Route: 065
  10. FERINJECT [Suspect]
     Active Substance: FERRIC CARBOXYMALTOSE
     Dosage: UNKNOWN
     Route: 042
  11. CLARITHROMYCIN. [Suspect]
     Active Substance: CLARITHROMYCIN
     Dosage: UNKNOWN
     Route: 048
  12. MOXIFLOXACIN. [Suspect]
     Active Substance: MOXIFLOXACIN
     Dosage: UNKNOWN
     Route: 065
  13. VENOFER [Suspect]
     Active Substance: IRON SUCROSE
     Dosage: UNKNOWN
     Route: 042
  14. MALTOFER (IRON III HYDROXIDE POLYMALTOSE COMPLEX) [Suspect]
     Active Substance: IRON POLYMALTOSE
     Dosage: UNKNOWN
     Route: 048
  15. MEROPENEM. [Suspect]
     Active Substance: MEROPENEM
     Dosage: UNKNOWN
     Route: 065

REACTIONS (5)
  - Enterococcal infection [Unknown]
  - Disease progression [Unknown]
  - Stenotrophomonas infection [Unknown]
  - Acinetobacter infection [Unknown]
  - Skin ulcer [Unknown]

NARRATIVE: CASE EVENT DATE: 20181207
